FAERS Safety Report 21280436 (Version 4)
Quarter: 2022Q4

REPORT INFORMATION
  Report Type: Report from Study
  Country: CN (occurrence: None)
  Receive Date: 20220901
  Receipt Date: 20221220
  Transmission Date: 20230112
  Serious: Yes (Hospitalization)
  Sender: FDA-Public Use
  Company Number: CN-ROCHE-3165224

PATIENT
  Age: 64 Year
  Sex: Female
  Weight: 51 kg

DRUGS (32)
  1. PERTUZUMAB [Suspect]
     Active Substance: PERTUZUMAB
     Indication: Breast cancer
     Route: 041
     Dates: start: 20220726, end: 20220726
  2. PERTUZUMAB [Suspect]
     Active Substance: PERTUZUMAB
     Route: 041
     Dates: start: 20220817, end: 20220817
  3. PERTUZUMAB [Suspect]
     Active Substance: PERTUZUMAB
     Route: 041
     Dates: start: 20220907, end: 20220907
  4. PERTUZUMAB [Suspect]
     Active Substance: PERTUZUMAB
     Route: 041
     Dates: start: 20220927, end: 20220927
  5. TRASTUZUMAB [Suspect]
     Active Substance: TRASTUZUMAB
     Indication: Breast cancer
     Route: 041
     Dates: start: 20220726, end: 20220726
  6. TRASTUZUMAB [Suspect]
     Active Substance: TRASTUZUMAB
     Route: 041
     Dates: start: 20220817, end: 20220817
  7. TRASTUZUMAB [Suspect]
     Active Substance: TRASTUZUMAB
     Route: 041
     Dates: start: 20220907, end: 20220907
  8. TRASTUZUMAB [Suspect]
     Active Substance: TRASTUZUMAB
     Route: 041
     Dates: start: 20220927, end: 20220927
  9. DOCETAXEL [Suspect]
     Active Substance: DOCETAXEL
     Indication: Breast cancer
     Dosage: 104.1 MG
     Route: 041
     Dates: start: 20220726, end: 20220726
  10. DOCETAXEL [Suspect]
     Active Substance: DOCETAXEL
     Dosage: 104.1 MG
     Route: 041
     Dates: start: 20220817, end: 20220817
  11. DOCETAXEL [Suspect]
     Active Substance: DOCETAXEL
     Dosage: 104.1 MG
     Route: 041
     Dates: start: 20220907, end: 20220907
  12. DOCETAXEL [Suspect]
     Active Substance: DOCETAXEL
     Dosage: 104.1 MG
     Route: 041
     Dates: start: 20220927, end: 20220927
  13. IRBESARTAN [Concomitant]
     Active Substance: IRBESARTAN
     Indication: Hypertension
     Route: 048
     Dates: start: 2017
  14. NIFEDIPINE [Concomitant]
     Active Substance: NIFEDIPINE
     Indication: Hypertension
     Route: 048
     Dates: start: 20220705
  15. RIVAROXABAN [Concomitant]
     Active Substance: RIVAROXABAN
     Route: 048
     Dates: start: 20220713, end: 20220802
  16. METOPROLOL TARTRATE [Concomitant]
     Active Substance: METOPROLOL TARTRATE
     Indication: Hypertension
     Route: 048
     Dates: start: 20220714
  17. ATORVASTATIN CALCIUM [Concomitant]
     Active Substance: ATORVASTATIN CALCIUM
     Indication: Coronary artery disease
     Route: 048
     Dates: start: 20220722
  18. DEXAMETHASONE ACETATE [Concomitant]
     Active Substance: DEXAMETHASONE ACETATE
     Route: 048
     Dates: start: 20220725, end: 20220727
  19. PALONOSETRON HYDROCHLORIDE [Concomitant]
     Active Substance: PALONOSETRON HYDROCHLORIDE
     Route: 048
     Dates: start: 20220726, end: 20220726
  20. ASPIRIN [Concomitant]
     Active Substance: ASPIRIN
     Route: 048
     Dates: start: 20220722
  21. RECOMBINANT HUMAN GRANULOCYTE STIMULATING FACTOR INJECTION (RHG-CSF) ( [Concomitant]
     Route: 058
     Dates: start: 20220803
  22. AMINO ACIDS, SOURCE UNSPECIFIED [Concomitant]
     Active Substance: AMINO ACIDS, SOURCE UNSPECIFIED
     Route: 041
     Dates: start: 20220803
  23. AMINO ACIDS, SOURCE UNSPECIFIED [Concomitant]
     Active Substance: AMINO ACIDS, SOURCE UNSPECIFIED
     Route: 041
     Dates: start: 20220805
  24. OMEPRAZOLE [Concomitant]
     Active Substance: OMEPRAZOLE
     Dosage: 20 MG/TIME
     Route: 048
     Dates: start: 20220803
  25. DICLOFENAC SODIUM [Concomitant]
     Active Substance: DICLOFENAC SODIUM
     Indication: Pyrexia
     Dosage: 75MG/TIME
     Route: 048
     Dates: start: 20220803
  26. FAT EMULSION INJECTION (C14-24) [Concomitant]
     Dosage: 100 ML/TIME
     Route: 041
     Dates: start: 20220803
  27. SODIUM CHLORIDE [Concomitant]
     Active Substance: SODIUM CHLORIDE
     Dosage: 100ML/TIME
     Route: 041
     Dates: start: 20220804
  28. DEXTRAN 40 GLUCOSE [Concomitant]
     Route: 041
     Dates: start: 20220804
  29. SODIUM LACTATE RINGER^S [Concomitant]
     Route: 041
     Dates: start: 20220804
  30. TROPISETRON HYDROCHLORIDE [Concomitant]
     Active Substance: TROPISETRON HYDROCHLORIDE
     Route: 041
     Dates: start: 20220804
  31. ONDANSETRON HYDROCHLORIDE [Concomitant]
     Active Substance: ONDANSETRON HYDROCHLORIDE
     Route: 048
     Dates: start: 20220804
  32. MATRINE [Concomitant]
     Active Substance: MATRINE
     Route: 041
     Dates: start: 20220804, end: 20220805

REACTIONS (3)
  - Pneumonia [Recovered/Resolved]
  - White blood cell count decreased [Recovered/Resolved]
  - Neutrophil count decreased [Recovered/Resolved]

NARRATIVE: CASE EVENT DATE: 20220803
